FAERS Safety Report 12154487 (Version 1)
Quarter: 2016Q1

REPORT INFORMATION
  Report Type: Spontaneous
  Country: ES (occurrence: ES)
  Receive Date: 20160307
  Receipt Date: 20160307
  Transmission Date: 20160526
  Serious: Yes (Other)
  Sender: FDA-Public Use
  Company Number: ES-ABBVIE-16K-144-1554084-00

PATIENT
  Age: 41 Year
  Sex: Female

DRUGS (2)
  1. HUMIRA [Suspect]
     Active Substance: ADALIMUMAB
     Indication: CROHN^S DISEASE
     Route: 058
     Dates: start: 20141001, end: 20151230
  2. IMUREL [Concomitant]
     Active Substance: AZATHIOPRINE SODIUM
     Indication: PRODUCT USED FOR UNKNOWN INDICATION

REACTIONS (6)
  - Fatigue [Unknown]
  - Headache [Not Recovered/Not Resolved]
  - Demyelination [Recovered/Resolved with Sequelae]
  - Muscle spasms [Not Recovered/Not Resolved]
  - Vision blurred [Not Recovered/Not Resolved]
  - Arthralgia [Unknown]

NARRATIVE: CASE EVENT DATE: 2015
